FAERS Safety Report 10035662 (Version 1)
Quarter: 2014Q1

REPORT INFORMATION
  Report Type: Spontaneous
  Country: CA (occurrence: None)
  Receive Date: 20140321
  Receipt Date: 20140321
  Transmission Date: 20141002
  Serious: Yes (Hospitalization, Other)
  Sender: FDA-Public Use
  Company Number: ADR-2014-00435

PATIENT
  Sex: 0

DRUGS (1)
  1. LIORESAL [Suspect]
     Route: 037

REACTIONS (5)
  - Confusional state [None]
  - Headache [None]
  - Chest pain [None]
  - Hyponatraemia [None]
  - Polydipsia [None]
